FAERS Safety Report 17214604 (Version 1)
Quarter: 2019Q4

REPORT INFORMATION
  Report Type: Spontaneous
  Country: FR (occurrence: FR)
  Receive Date: 20191230
  Receipt Date: 20191230
  Transmission Date: 20200122
  Serious: Yes (Hospitalization)
  Sender: FDA-Public Use
  Company Number: FR-MYLANLABS-2019M1127638

PATIENT
  Age: 54 Year
  Sex: Male
  Weight: 98 kg

DRUGS (5)
  1. PREDNISOLONE. [Suspect]
     Active Substance: PREDNISOLONE
     Indication: DYSURIA
     Dosage: 80 MILLIGRAM, QD
     Route: 048
     Dates: start: 20190621, end: 20190624
  2. SILODYX [Concomitant]
     Active Substance: SILODOSIN
     Dosage: 1 DOSAGE FORM, QD
     Route: 048
  3. METEOSPASMYL (ALVERINE CITRATE\DIMETHICONE) [Concomitant]
     Active Substance: ALVERINE CITRATE\DIMETHICONE
     Dosage: 3 DOSAGE FORM, QD
     Route: 048
  4. SPIFEN [Concomitant]
     Active Substance: IBUPROFEN
     Indication: DYSURIA
     Dosage: 3 DOSAGE FORM, QD
     Route: 048
     Dates: start: 20190621, end: 20190702
  5. ARCALION                           /01246001/ [Concomitant]
     Active Substance: SULBUTIAMINE
     Dosage: 2 DOSAGE FORM, QD
     Route: 048

REACTIONS (1)
  - Cytomegalovirus infection [Recovered/Resolved]

NARRATIVE: CASE EVENT DATE: 20190711
